FAERS Safety Report 13223346 (Version 1)
Quarter: 2017Q1

REPORT INFORMATION
  Report Type: Other
  Country: US (occurrence: US)
  Receive Date: 20170212
  Receipt Date: 20170212
  Transmission Date: 20170428
  Serious: No
  Sender: FDA-Public Use
  Company Number: US-ACORDA-ACO_125919_2016

PATIENT
  Age: 61 Year
  Sex: Male

DRUGS (3)
  1. AMPYRA [Suspect]
     Active Substance: DALFAMPRIDINE
     Indication: MULTIPLE SCLEROSIS
     Dosage: 10MG, BID
     Route: 048
     Dates: start: 201604, end: 201604
  2. AMPYRA [Suspect]
     Active Substance: DALFAMPRIDINE
     Dosage: 10 MG, BID
     Route: 048
     Dates: start: 201605, end: 201605
  3. AMPYRA [Suspect]
     Active Substance: DALFAMPRIDINE
     Dosage: 10 MG, QD
     Route: 048
     Dates: start: 201604, end: 201604

REACTIONS (8)
  - Multiple sclerosis [Recovering/Resolving]
  - Fatigue [Recovering/Resolving]
  - Anxiety [Recovering/Resolving]
  - Condition aggravated [Recovering/Resolving]
  - Stress [Recovering/Resolving]
  - Speech disorder [Recovering/Resolving]
  - Slow speech [Recovering/Resolving]
  - Clumsiness [Recovering/Resolving]

NARRATIVE: CASE EVENT DATE: 201604
